FAERS Safety Report 5171058-X (Version None)
Quarter: 2006Q4

REPORT INFORMATION
  Report Type: 
  Country: None (occurrence: None)
  Receive Date: 20061213
  Receipt Date: 20061207
  Transmission Date: 20070319
  Serious: Yes (Hospitalization, Congenital Anomaly)
  Sender: FDA-Public Use
  Company Number: US-GLAXOSMITHKLINE-A0630783B

PATIENT
  Sex: Female

DRUGS (4)
  1. ZOFRAN [Suspect]
     Indication: HYPEREMESIS GRAVIDARUM
  2. PHENERGAN [Concomitant]
  3. FLINTSTONES MULTI VITAMIN [Concomitant]
  4. TUMS [Concomitant]

REACTIONS (5)
  - APLASIA CUTIS CONGENITA [None]
  - CONGENITAL HAIR DISORDER [None]
  - DRUG EXPOSURE DURING PREGNANCY [None]
  - THROMBOCYTHAEMIA [None]
  - THROMBOCYTOPENIA NEONATAL [None]
